FAERS Safety Report 21736558 (Version 1)
Quarter: 2022Q4

REPORT INFORMATION
  Report Type: Spontaneous
  Country: CN (occurrence: None)
  Receive Date: 20221215
  Receipt Date: 20221215
  Transmission Date: 20230112
  Serious: Yes (Other)
  Sender: FDA-Public Use
  Company Number: CN-ROCHE-2842633

PATIENT
  Age: 55 Year
  Sex: Female

DRUGS (20)
  1. HERCEPTIN [Suspect]
     Active Substance: TRASTUZUMAB
     Indication: Breast cancer
     Dosage: AC-TH REGIMEN FOR 2 CYCLES
     Route: 065
     Dates: start: 20181220
  2. HERCEPTIN [Suspect]
     Active Substance: TRASTUZUMAB
     Dosage: NCB + H REGIMEN FOR 4 CYCLES
     Route: 065
     Dates: start: 20190212
  3. HERCEPTIN [Suspect]
     Active Substance: TRASTUZUMAB
     Dosage: TRASTUZUMAB TARGETED THERAPY
     Route: 065
     Dates: start: 20190617, end: 202002
  4. HERCEPTIN [Suspect]
     Active Substance: TRASTUZUMAB
     Dosage: 8MG/KG FOR THE FIRST TIME, MAINTENANCE DOSE 6MG/KG, 21 DAYS AS A CYCLE
     Route: 065
     Dates: start: 20200708
  5. HERCEPTIN [Suspect]
     Active Substance: TRASTUZUMAB
     Dosage: SINGLE TARGET
     Route: 065
     Dates: start: 2021
  6. HERCEPTIN [Suspect]
     Active Substance: TRASTUZUMAB
     Dosage: ABEMACICLIB+TRASTUZUMAB+FULVESTRANT INJECTION
     Route: 065
     Dates: start: 2022
  7. PERJETA [Suspect]
     Active Substance: PERTUZUMAB
     Indication: Breast cancer
     Dosage: 840MG FOR THE FIRST TIME, MAINTENANCE DOSE 420MG, 21 DAYS AS A CYCLE
     Route: 065
     Dates: start: 20200708
  8. PERJETA [Suspect]
     Active Substance: PERTUZUMAB
     Route: 065
  9. VINORELBINE [Suspect]
     Active Substance: VINORELBINE TARTRATE
     Indication: Breast cancer
     Dosage: NCB + H REGIMEN FOR 4 CYCLES
     Route: 065
     Dates: start: 20190212
  10. CARBOPLATIN [Suspect]
     Active Substance: CARBOPLATIN
     Indication: Breast cancer
     Dosage: NCB + H REGIMEN FOR 4 CYCLES
     Route: 065
     Dates: start: 20190212
  11. DOXORUBICIN [Concomitant]
     Active Substance: DOXORUBICIN
     Indication: Breast cancer
     Dosage: AT REGIMEN FOR 2 CYCLES
     Dates: start: 20181031
  12. DOXORUBICIN [Concomitant]
     Active Substance: DOXORUBICIN
     Dosage: AC-TH REGIMEN FOR 2 CYCLES
     Dates: start: 20181220
  13. PACLITAXEL [Concomitant]
     Active Substance: PACLITAXEL
     Indication: Breast cancer
     Dosage: AT REGIMEN FOR 2 CYCLES
     Dates: start: 20181031
  14. PACLITAXEL [Concomitant]
     Active Substance: PACLITAXEL
     Dosage: AC-TH REGIMEN FOR 2 CYCLES
     Dates: start: 20181220
  15. CYCLOPHOSPHAMIDE [Concomitant]
     Active Substance: CYCLOPHOSPHAMIDE
     Indication: Breast cancer
     Dosage: AC-TH REGIMEN FOR 2 CYCLES
     Dates: start: 20181220
  16. ANASTROZOLE [Concomitant]
     Active Substance: ANASTROZOLE
     Indication: Breast cancer
     Route: 048
     Dates: end: 20200626
  17. FULVESTRANT [Concomitant]
     Active Substance: FULVESTRANT
     Indication: Breast cancer
     Dosage: 28 DAYS AS A CYCLE
     Dates: start: 20200708
  18. FULVESTRANT [Concomitant]
     Active Substance: FULVESTRANT
     Dosage: FULVESTRANT INJECTION + SINGLE TARGET
     Dates: start: 2021
  19. FULVESTRANT [Concomitant]
     Active Substance: FULVESTRANT
     Dosage: TRASTUZUMAB + FULVESTRANT INJECTION+ ABEMACICLIB
     Dates: start: 2022
  20. ABEMACICLIB [Concomitant]
     Active Substance: ABEMACICLIB
     Indication: Breast cancer
     Dosage: TRASTUZUMAB + FULVESTRANT INJECTION+ ABEMACICLIB
     Dates: start: 2022

REACTIONS (1)
  - Neoplasm recurrence [Unknown]

NARRATIVE: CASE EVENT DATE: 20200626
